FAERS Safety Report 13914194 (Version 1)
Quarter: 2017Q3

REPORT INFORMATION
  Report Type: Spontaneous
  Country: US (occurrence: US)
  Receive Date: 20170828
  Receipt Date: 20170828
  Transmission Date: 20171127
  Serious: No
  Sender: FDA-Public Use
  Company Number: US-ROCHE-1136520

PATIENT
  Sex: Male

DRUGS (3)
  1. VITAMIN [Concomitant]
     Active Substance: VITAMINS
     Route: 042
  2. NUTROPIN [Suspect]
     Active Substance: SOMATROPIN
     Indication: PRODUCT USED FOR UNKNOWN INDICATION
     Route: 065
  3. CORTISOL [Concomitant]
     Active Substance: HYDROCORTISONE

REACTIONS (7)
  - Gynaecomastia [Unknown]
  - Increased appetite [Unknown]
  - Fatigue [Unknown]
  - Lethargy [Unknown]
  - Multiple chemical sensitivity [Unknown]
  - Energy increased [Unknown]
  - Asthenia [Unknown]
